FAERS Safety Report 6681543-7 (Version None)
Quarter: 2010Q2

REPORT INFORMATION
  Report Type: 
  Country: None (occurrence: None)
  Receive Date: 20100414
  Receipt Date: 20100406
  Transmission Date: 20101027
  Serious: Yes (Hospitalization)
  Sender: FDA-Public Use
  Company Number: PHHO2010DE05244

PATIENT
  Sex: Female

DRUGS (4)
  1. CERTICAN [Suspect]
     Indication: RENAL TRANSPLANT
     Dosage: 1.5 MG
     Route: 048
     Dates: end: 20100318
  2. SIMULECT [Suspect]
     Indication: RENAL TRANSPLANT
     Dosage: UNK
     Route: 048
  3. MYFORTIC [Suspect]
     Indication: RENAL TRANSPLANT
     Route: 048
  4. CYCLOSPORINE [Suspect]
     Indication: RENAL TRANSPLANT
     Dosage: 200 MG DAILY
     Route: 048
     Dates: start: 20100319, end: 20100324

REACTIONS (8)
  - ABDOMINAL PAIN [None]
  - ACUTE PRERENAL FAILURE [None]
  - DIARRHOEA [None]
  - GASTROENTERITIS VIRAL [None]
  - NAUSEA [None]
  - POSTOPERATIVE WOUND COMPLICATION [None]
  - VOMITING [None]
  - WOUND DEHISCENCE [None]
